FAERS Safety Report 9613456 (Version 1)
Quarter: 2013Q4

REPORT INFORMATION
  Report Type: Spontaneous
  Country: GB (occurrence: None)
  Receive Date: 20131008
  Receipt Date: 20131008
  Transmission Date: 20140711
  Serious: Yes (Hospitalization, Other)
  Sender: FDA-Public Use
  Company Number: SYM-2013-11282

PATIENT
  Age: 32 Year
  Sex: Male

DRUGS (3)
  1. ZYBAN [Suspect]
     Indication: INTENTIONAL OVERDOSE
     Route: 048
     Dates: start: 20010114, end: 20010114
  2. ZYBAN [Suspect]
     Indication: SMOKING CESSATION THERAPY
     Route: 048
     Dates: start: 20010114, end: 20010114
  3. MOTRIN [Suspect]
     Route: 048
     Dates: start: 20010114, end: 20010114

REACTIONS (7)
  - Overdose [None]
  - Ataxia [None]
  - Agitation [None]
  - Confusional state [None]
  - Convulsion [None]
  - Hallucination, visual [None]
  - Tremor [None]
